FAERS Safety Report 8783783 (Version 2)
Quarter: 2012Q4

REPORT INFORMATION
  Report Type: 
  Country: DE (occurrence: DE)
  Receive Date: 20120913
  Receipt Date: 20121012
  Transmission Date: 20130627
  Serious: Yes (Hospitalization)
  Sender: FDA-Public Use
  Company Number: DE-B.I. PHARMACEUTICALS,INC./RIDGEFIELD-2012-DE-02130DE

PATIENT
  Sex: Male
  Weight: 85 kg

DRUGS (8)
  1. PRADAXA [Suspect]
     Indication: ATRIAL FIBRILLATION
     Dosage: 220 mg
  2. PRASUGREL [Suspect]
     Indication: STENT PLACEMENT
     Dosage: 10 NR
  3. ASS [Suspect]
     Indication: CORONARY ARTERY DISEASE
     Dosage: 100 NR
  4. EPLERON [Concomitant]
     Indication: CARDIAC FAILURE
     Dosage: 25 NR
  5. TORASEMID [Concomitant]
     Indication: RENAL FAILURE
     Dosage: 20 NR
  6. ATACAND [Concomitant]
     Dosage: 4 NR
  7. L-THYROXIN [Concomitant]
     Dosage: 25 NR
  8. JANUVIA [Concomitant]
     Dosage: 100 NR

REACTIONS (3)
  - Haemangioma [Unknown]
  - Melaena [Recovered/Resolved]
  - Gastrointestinal angiodysplasia haemorrhagic [Recovered/Resolved]
